FAERS Safety Report 9948322 (Version 2)
Quarter: 2014Q1

REPORT INFORMATION
  Report Type: Report from Study
  Country: US (occurrence: US)
  Receive Date: 20140303
  Receipt Date: 20140303
  Transmission Date: 20141002
  Serious: No
  Sender: FDA-Public Use
  Company Number: US-ABBVIE-13P-163-1039392-00

PATIENT
  Age: 30 Year
  Sex: Male

DRUGS (5)
  1. HUMIRA [Suspect]
     Indication: CROHN^S DISEASE
     Dates: start: 20121025
  2. HUMIRA [Suspect]
     Dates: start: 20130113
  3. FLONASE [Concomitant]
     Indication: HYPERSENSITIVITY
     Dosage: SPRAY
  4. IMODIUM [Concomitant]
     Indication: DIARRHOEA
     Dosage: OVER-THE-COUNTER
  5. IBUPROFEN [Concomitant]
     Indication: BACK PAIN
     Dosage: OVER-THE-COUNTER

REACTIONS (6)
  - Hypersensitivity [Not Recovered/Not Resolved]
  - Nasopharyngitis [Not Recovered/Not Resolved]
  - Sinusitis [Not Recovered/Not Resolved]
  - Nausea [Not Recovered/Not Resolved]
  - Dizziness [Not Recovered/Not Resolved]
  - Vomiting [Not Recovered/Not Resolved]
